FAERS Safety Report 6784149-4 (Version None)
Quarter: 2010Q2

REPORT INFORMATION
  Report Type: 
  Country: None (occurrence: None)
  Receive Date: 20100622
  Receipt Date: 20100611
  Transmission Date: 20101027
  Serious: Yes (Disabling)
  Sender: FDA-Public Use
  Company Number: JP-JNJFOC-20091203028

PATIENT
  Sex: Female
  Weight: 52 kg

DRUGS (25)
  1. DOXORUBICIN HCL [Suspect]
     Indication: OVARIAN CANCER RECURRENT
     Dosage: CYCLE 6
     Route: 042
     Dates: start: 20090701, end: 20100310
  2. DOXORUBICIN HCL [Suspect]
     Dosage: CYCLE 1
     Route: 042
     Dates: start: 20090701, end: 20100310
  3. DOXORUBICIN HCL [Suspect]
     Dosage: CYCLE 2
     Route: 042
     Dates: start: 20090701, end: 20100310
  4. DOXORUBICIN HCL [Suspect]
     Dosage: CYCLE 3
     Route: 042
     Dates: start: 20090701, end: 20100310
  5. DOXORUBICIN HCL [Suspect]
     Dosage: CYCLE 4
     Route: 042
     Dates: start: 20090701, end: 20100310
  6. DOXORUBICIN HCL [Suspect]
     Dosage: CYCLE 5
     Route: 042
     Dates: start: 20090701, end: 20100310
  7. WARFARIN [Concomitant]
     Indication: PROPHYLAXIS
     Route: 048
  8. WARFARIN [Concomitant]
     Route: 048
  9. WARFARIN [Concomitant]
     Route: 048
  10. LAXOBERON [Concomitant]
     Indication: CONSTIPATION
     Route: 048
  11. PRIMPERAN TAB [Concomitant]
     Indication: PROPHYLAXIS
     Route: 048
  12. ADONA [Concomitant]
     Route: 048
     Dates: start: 20090803, end: 20090813
  13. POLAPREZINC [Concomitant]
     Indication: PROPHYLAXIS
     Route: 048
  14. DEXALTIN [Concomitant]
     Indication: STOMATITIS
     Route: 049
     Dates: start: 20090813, end: 20090825
  15. LENDORMIN D [Concomitant]
     Indication: INSOMNIA
     Route: 048
  16. LENDORMIN D [Concomitant]
     Route: 048
  17. MAGNESIUM OXIDE [Concomitant]
     Indication: CONSTIPATION
     Route: 048
  18. FOROCYLE S [Concomitant]
     Route: 042
  19. XYLOCAINE [Concomitant]
     Indication: STOMATITIS
     Route: 002
  20. FILGRASTIM [Concomitant]
     Indication: NEUTROPHIL COUNT DECREASED
     Route: 058
  21. FILGRASTIM [Concomitant]
     Route: 058
  22. PASTARON [Concomitant]
     Indication: PROPHYLAXIS
     Route: 061
  23. AZUNOL [Concomitant]
     Indication: PROPHYLAXIS
     Route: 002
     Dates: start: 20090813, end: 20090825
  24. CYANOCOBALAMIN [Concomitant]
     Indication: NEUROPATHY PERIPHERAL
     Route: 048
  25. LOXONIN [Concomitant]
     Route: 048

REACTIONS (1)
  - FEMALE GENITAL TRACT FISTULA [None]
